FAERS Safety Report 21305992 (Version 4)
Quarter: 2023Q2

REPORT INFORMATION
  Report Type: Spontaneous
  Country: US (occurrence: US)
  Receive Date: 20220908
  Receipt Date: 20230406
  Transmission Date: 20230721
  Serious: No
  Sender: FDA-Public Use
  Company Number: US-BRISTOL-MYERS SQUIBB COMPANY-2022-102922

PATIENT
  Age: 67 Year
  Sex: Female
  Weight: 60.781 kg

DRUGS (1)
  1. REVLIMID [Suspect]
     Active Substance: LENALIDOMIDE
     Indication: Plasma cell myeloma
     Dosage: FREQ: DAYS 1-21 Q 28 DAYS
     Route: 048
     Dates: start: 20220815

REACTIONS (6)
  - Malaise [Not Recovered/Not Resolved]
  - Fatigue [Unknown]
  - Treatment noncompliance [Unknown]
  - Gout [Unknown]
  - Peripheral swelling [Not Recovered/Not Resolved]
  - Gait disturbance [Not Recovered/Not Resolved]

NARRATIVE: CASE EVENT DATE: 20220827
